FAERS Safety Report 7594879-2 (Version None)
Quarter: 2011Q3

REPORT INFORMATION
  Report Type: 
  Country: None (occurrence: None)
  Receive Date: 20110707
  Receipt Date: 20110705
  Transmission Date: 20111222
  Serious: Yes (Hospitalization, Other)
  Sender: FDA-Public Use
  Company Number: US-BRISTOL-MYERS SQUIBB COMPANY-14537823

PATIENT
  Age: 40 Year
  Sex: Female

DRUGS (4)
  1. PHENYTOIN [Concomitant]
  2. GABAPENTIN [Concomitant]
  3. IPILIMUMAB [Suspect]
     Indication: MALIGNANT MELANOMA
     Dosage: INITIATED ON 07APR2008
     Route: 042
     Dates: start: 20080407, end: 20090121
  4. LOPRESSOR [Concomitant]

REACTIONS (6)
  - VOMITING [None]
  - ASPARTATE AMINOTRANSFERASE INCREASED [None]
  - LIPASE INCREASED [None]
  - CELLULITIS [None]
  - ALANINE AMINOTRANSFERASE INCREASED [None]
  - BLOOD BILIRUBIN INCREASED [None]
